FAERS Safety Report 18356588 (Version 1)
Quarter: 2020Q4

REPORT INFORMATION
  Report Type: Other
  Country: AT (occurrence: AT)
  Receive Date: 20201007
  Receipt Date: 20201007
  Transmission Date: 20210114
  Serious: Yes (Life-Threatening, Hospitalization, Other)
  Sender: FDA-Public Use
  Company Number: AT-SAPTALIS PHARMACEUTICALS,LLC-000004

PATIENT
  Age: 44 Year
  Sex: Female

DRUGS (4)
  1. IOMERON [Suspect]
     Active Substance: IOMEPROL
     Indication: INTERVERTEBRAL DISC DEGENERATION
     Dosage: TEST INJECTION OF 1 ML
  2. LIDOCAINE. [Concomitant]
     Active Substance: LIDOCAINE
     Indication: ANAESTHESIA
  3. BUCAINE 0.25 [Suspect]
     Active Substance: BUPIVACAINE
     Indication: INTERVERTEBRAL DISC DEGENERATION
  4. VOLON A [TRIAMCINOLONE ACETONIDE] [Suspect]
     Active Substance: TRIAMCINOLONE ACETONIDE
     Indication: INTERVERTEBRAL DISC DEGENERATION
     Dosage: 10 MG (1 ML)

REACTIONS (3)
  - Quadriparesis [Not Recovered/Not Resolved]
  - Spinal cord infarction [Not Recovered/Not Resolved]
  - Dyspnoea [Recovered/Resolved]
